FAERS Safety Report 6391998-3 (Version None)
Quarter: 2009Q4

REPORT INFORMATION
  Report Type: 
  Country: None (occurrence: None)
  Receive Date: 20091007
  Receipt Date: 20090928
  Transmission Date: 20100525
  Serious: Yes (Other)
  Sender: FDA-Public Use
  Company Number: B0596647A

PATIENT

DRUGS (1)
  1. ZIDOVUDINE [Suspect]
     Indication: HIV INFECTION

REACTIONS (3)
  - EYELID PTOSIS [None]
  - MITOCHONDRIAL TOXICITY [None]
  - MYOPATHY [None]
